FAERS Safety Report 15186458 (Version 2)
Quarter: 2019Q1

REPORT INFORMATION
  Report Type: Report from Study
  Country: US (occurrence: US)
  Receive Date: 20180723
  Receipt Date: 20190130
  Transmission Date: 20190417
  Serious: No
  Sender: FDA-Public Use
  Company Number: US-EXELIXIS-CABO-18012760

PATIENT
  Sex: Male

DRUGS (1)
  1. CABOMETYX [Suspect]
     Active Substance: CABOZANTINIB S-MALATE
     Indication: RENAL CANCER
     Dosage: 40 MG, UNK

REACTIONS (10)
  - Gastrooesophageal reflux disease [Unknown]
  - Impaired healing [Unknown]
  - Dysgeusia [Unknown]
  - Perianal erythema [Unknown]
  - Hepatic enzyme increased [Unknown]
  - Tongue discomfort [Unknown]
  - Anorectal discomfort [Unknown]
  - Faeces hard [Unknown]
  - Stomatitis [Unknown]
  - Nausea [Unknown]
